FAERS Safety Report 21748631 (Version 1)
Quarter: 2022Q4

REPORT INFORMATION
  Report Type: Spontaneous
  Country: US (occurrence: None)
  Receive Date: 20221219
  Receipt Date: 20221219
  Transmission Date: 20230112
  Serious: No
  Sender: FDA-Public Use
  Company Number: US-ROCHE-3243827

PATIENT
  Sex: Female

DRUGS (1)
  1. OCREVUS [Suspect]
     Active Substance: OCRELIZUMAB
     Indication: Multiple sclerosis
     Dosage: YES
     Route: 065

REACTIONS (5)
  - Restlessness [Recovered/Resolved]
  - Visual impairment [Recovered/Resolved]
  - COVID-19 [Unknown]
  - Logorrhoea [Recovered/Resolved]
  - Restlessness [Recovered/Resolved]
